FAERS Safety Report 8168518-6 (Version None)
Quarter: 2012Q1

REPORT INFORMATION
  Report Type: 
  Country: None (occurrence: None)
  Receive Date: 20120227
  Receipt Date: 20120227
  Transmission Date: 20120608
  Serious: Yes (Life-Threatening)
  Sender: FDA-Public Use
  Company Number: None

PATIENT
  Sex: Male
  Weight: 68.038 kg

DRUGS (2)
  1. ACTOS [Suspect]
     Indication: DIABETES MELLITUS
     Dosage: 30MG
     Route: 048
     Dates: start: 20100430, end: 20110313
  2. ACTOS [Concomitant]
     Dosage: 45MG
     Route: 048
     Dates: start: 20110314, end: 20120212

REACTIONS (1)
  - BLADDER CANCER [None]
